FAERS Safety Report 16767802 (Version 5)
Quarter: 2022Q3

REPORT INFORMATION
  Report Type: Spontaneous
  Country: DE (occurrence: DE)
  Receive Date: 20190903
  Receipt Date: 20220920
  Transmission Date: 20221027
  Serious: Yes (Other)
  Sender: FDA-Public Use
  Company Number: DE-MYLANLABS-2019M1081835

PATIENT
  Age: 54 Year
  Sex: Male
  Weight: 78 kg

DRUGS (30)
  1. VALSARTAN [Suspect]
     Active Substance: VALSARTAN
     Indication: Hypertension
     Dosage: 160 MILLIGRAM, QD (ONCE IN THE MORNING)
     Route: 048
     Dates: start: 2015, end: 201807
  2. VALSARTAN [Suspect]
     Active Substance: VALSARTAN
     Indication: Hypertension
     Dosage: UNK
     Route: 065
  3. VALSARTAN [Suspect]
     Active Substance: VALSARTAN
     Indication: Hypertension
     Dosage: UNK
     Route: 065
  4. CANDESARTAN [Suspect]
     Active Substance: CANDESARTAN
     Indication: Product used for unknown indication
     Dosage: DAILY (1 EVENING)
     Route: 065
  5. CANDESARTAN [Suspect]
     Active Substance: CANDESARTAN
     Dosage: UNK
     Route: 065
  6. CANDESARTAN [Suspect]
     Active Substance: CANDESARTAN
     Indication: Product used for unknown indication
     Dosage: UNK
     Route: 065
  7. CANDESARTAN [Suspect]
     Active Substance: CANDESARTAN
     Indication: Product used for unknown indication
     Dosage: UNK
     Route: 065
  8. PREDNISONE [Concomitant]
     Active Substance: PREDNISONE
     Dosage: UNK, DAILY (1 AT MORNING)
     Route: 065
  9. ASPIRIN [Concomitant]
     Active Substance: ASPIRIN
     Dosage: UNK UNK, AM (1 AT MORNING)
     Route: 065
  10. ASPIRIN [Concomitant]
     Active Substance: ASPIRIN
     Dosage: UNK, DAILY(1 AT MORNING)
     Route: 065
  11. AMLODIPIN ABZ [Concomitant]
     Dosage: UNK UNK, DAILY(1 AT NOON)
     Route: 065
  12. CANDESARTAN CILEXETIL [Concomitant]
     Active Substance: CANDESARTAN CILEXETIL
     Dosage: UNK, PM (1 EVENING)
     Route: 065
  13. METOPROLOL SUCCINATE [Concomitant]
     Active Substance: METOPROLOL SUCCINATE
     Dosage: UNK, PM (1 EVENING)
     Route: 065
  14. Nepresol [Concomitant]
     Dosage: UNK,DAILY (2 EVENING)
     Route: 065
  15. DOXAZOSIN [Concomitant]
     Active Substance: DOXAZOSIN MESYLATE
     Dosage: 2 DOSAGE FORM, PM (2 EVENING)
     Route: 065
  16. PRAVASTATIN 1A PHARMA GMBH [Concomitant]
     Dosage: 1 DOSAGE FORM, PM (1 EVENING)
     Route: 065
  17. PRAVASTATIN 1A PHARMA GMBH [Concomitant]
     Dosage: UNK, DAILY (1 EVENING)
     Route: 065
  18. CPS [Concomitant]
     Dosage: UP TO 8 SACHETS PER DAY TO THE MEAL
     Route: 065
  19. RENVELA [Concomitant]
     Active Substance: SEVELAMER CARBONATE
     Dosage: UNK, AM (2 IN MORNING)
     Route: 065
  20. RENVELA [Concomitant]
     Active Substance: SEVELAMER CARBONATE
     Dosage: UNK, DAILY (2 IN MORNING)
     Route: 065
  21. CALCITRIOL [Concomitant]
     Active Substance: CALCITRIOL
     Dosage: 2 DOSAGE FORM, AM (2 IN MORNING)
     Route: 065
  22. CALCITRIOL [Concomitant]
     Active Substance: CALCITRIOL
     Dosage: 0.25 UG,DAILY (2 IN MORNING)
     Route: 065
  23. RENVELA [Concomitant]
     Active Substance: SEVELAMER CARBONATE
     Dosage: UNK
     Route: 065
  24. CHOLECALCIFEROL [Concomitant]
     Active Substance: CHOLECALCIFEROL
     Dosage: UNK
     Route: 065
  25. SODIUM BICARBONATE [Concomitant]
     Active Substance: SODIUM BICARBONATE
     Dosage: UNK, BID(2-0-2 SATURDAY AND SUNDAY)
     Route: 065
  26. DREISAVIT N [Concomitant]
     Dosage: UNK, PM (1 EVENING)
     Route: 065
  27. METAMIZOLE SODIUM [Concomitant]
     Active Substance: METAMIZOLE SODIUM
     Dosage: UNK, PRN
     Route: 065
  28. PANTOPRAZOL MICRO [Concomitant]
     Dosage: UNK, BID (1 MORNING 1 EVENING)
     Route: 065
  29. RETACRIT [Concomitant]
     Active Substance: EPOETIN ALFA-EPBX
     Dosage: MONDAY AND FRIDAY, INTRAVENOUS
     Route: 065
  30. SERTRALINE HYDROCHLORIDE [Concomitant]
     Active Substance: SERTRALINE HYDROCHLORIDE
     Indication: Depression
     Dosage: UNK
     Route: 065

REACTIONS (11)
  - Mental impairment [Not Recovered/Not Resolved]
  - Anhedonia [Unknown]
  - Decreased interest [Unknown]
  - Job dissatisfaction [Unknown]
  - Depression [Unknown]
  - Anxiety disorder [Unknown]
  - Diabetes mellitus [Unknown]
  - Chronic kidney disease [Unknown]
  - Quality of life decreased [Not Recovered/Not Resolved]
  - Fear of disease [Not Recovered/Not Resolved]
  - Product contamination [Unknown]

NARRATIVE: CASE EVENT DATE: 20180101
